FAERS Safety Report 13332568 (Version 1)
Quarter: 2017Q1

REPORT INFORMATION
  Report Type: Report from Study
  Country: JP (occurrence: JP)
  Receive Date: 20170314
  Receipt Date: 20170314
  Transmission Date: 20170428
  Serious: Yes (Hospitalization)
  Sender: FDA-Public Use
  Company Number: JP-CONCORDIA PHARMACEUTICALS INC.-E2B_00008066

PATIENT
  Age: 65 Year
  Sex: Male

DRUGS (12)
  1. ZONISAMIDE. [Suspect]
     Active Substance: ZONISAMIDE
     Indication: DEMENTIA WITH LEWY BODIES
  2. TAMSULOSIN HYDROCHLORIDE. [Concomitant]
     Active Substance: TAMSULOSIN HYDROCHLORIDE
  3. NEODOPASTON [Concomitant]
     Active Substance: CARBIDOPA\LEVODOPA
  4. SENNOSIDE [Concomitant]
     Active Substance: SENNOSIDES
  5. NEODOPASTON [Concomitant]
     Active Substance: CARBIDOPA\LEVODOPA
  6. ZONISAMIDE. [Suspect]
     Active Substance: ZONISAMIDE
     Indication: PARKINSONISM
     Dosage: PLACEBO, 25MG/DAY OR 50MG/DAY
     Route: 048
     Dates: start: 20160611, end: 20160708
  7. MEMARY [Concomitant]
     Active Substance: MEMANTINE HYDROCHLORIDE
  8. ROZEREM [Concomitant]
     Active Substance: RAMELTEON
  9. DONEPEZIL HYDROCHLORIDE. [Concomitant]
     Active Substance: DONEPEZIL HYDROCHLORIDE
  10. TSUMURA YOKUKANSAN EXTRACT GRANULES FOR ETHICAL USE [Concomitant]
     Active Substance: HERBALS
  11. RIVOTRIL [Concomitant]
     Active Substance: CLONAZEPAM
  12. CANDESARTAN CILEXETIL. [Concomitant]
     Active Substance: CANDESARTAN CILEXETIL

REACTIONS (1)
  - Parkinsonism [Recovered/Resolved]

NARRATIVE: CASE EVENT DATE: 20160708
